FAERS Safety Report 19731242 (Version 2)
Quarter: 2021Q3

REPORT INFORMATION
  Report Type: Spontaneous
  Country: US (occurrence: US)
  Receive Date: 20210821
  Receipt Date: 20210903
  Transmission Date: 20211014
  Serious: Yes (Other)
  Sender: FDA-Public Use
  Company Number: US-JNJFOC-20210822233

PATIENT
  Age: 48 Year
  Sex: Male

DRUGS (2)
  1. NEUTROGENA ULTRA SHEER BODY MIST SUNSCREEN BROAD SPECTRUM 70 (AVO\HOM\OCTI\OCTO) [Suspect]
     Active Substance: AVOBENZONE\HOMOSALATE\OCTISALATE\OCTOCRYLENE
     Indication: PRODUCT USED FOR UNKNOWN INDICATION
     Dosage: NUMEROUS TIMES A DAY. WORK OUTSIDE SO GENERALLY SEVERAL TIMES A DAY. USUALLY GET THE SPRAY BOTTLE AN
     Route: 061
     Dates: start: 20100417
  2. NEUTROGENA ULTRA SHEER BODY MIST SUNSCREEN BROAD SPECTRUM SPF 45 (AVO\HOM\OCTI\OCTO) [Suspect]
     Active Substance: AVOBENZONE\HOMOSALATE\OCTISALATE\OCTOCRYLENE
     Indication: PRODUCT USED FOR UNKNOWN INDICATION
     Route: 061

REACTIONS (1)
  - Malignant melanoma [Not Recovered/Not Resolved]

NARRATIVE: CASE EVENT DATE: 20110401
